FAERS Safety Report 7561216-9 (Version None)
Quarter: 2011Q2

REPORT INFORMATION
  Report Type: 
  Country: None (occurrence: None)
  Receive Date: 20110620
  Receipt Date: 20110620
  Transmission Date: 20111010
  Serious: Yes (Hospitalization)
  Sender: FDA-Public Use
  Company Number: None

PATIENT
  Sex: Female
  Weight: 95.45 kg

DRUGS (4)
  1. BEVACIZUMAB [Suspect]
     Dosage: 477 .2 MG
     Dates: end: 20110511
  2. FLUOROURACIL [Suspect]
     Dosage: 796 MG
     Dates: end: 20110511
  3. OXALIPLATIN (ELOXATIN) [Suspect]
     Dosage: 169 MG
     Dates: end: 20110511
  4. LEUCOVORIN CALCIUM [Suspect]
     Dosage: 398 MG
     Dates: end: 20110511

REACTIONS (2)
  - DEEP VEIN THROMBOSIS [None]
  - PULMONARY EMBOLISM [None]
